FAERS Safety Report 19485557 (Version 2)
Quarter: 2022Q4

REPORT INFORMATION
  Report Type: Spontaneous
  Country: US (occurrence: US)
  Receive Date: 20210702
  Receipt Date: 20221125
  Transmission Date: 20230113
  Serious: Yes (Death, Hospitalization, Other)
  Sender: FDA-Public Use
  Company Number: US-GILEAD-2021-0538887

PATIENT
  Age: 66 Year
  Sex: Male

DRUGS (12)
  1. HARVONI [Suspect]
     Active Substance: LEDIPASVIR\SOFOSBUVIR
     Indication: Chronic hepatitis C
     Dosage: UNK
     Route: 065
     Dates: start: 20170927, end: 20181219
  2. HARVONI [Suspect]
     Active Substance: LEDIPASVIR\SOFOSBUVIR
     Dosage: UNK
     Route: 065
     Dates: start: 201710, end: 201801
  3. CARVEDILOL [Concomitant]
     Active Substance: CARVEDILOL
  4. NADOLOL [Concomitant]
     Active Substance: NADOLOL
  5. PANTOPRAZOLE [Concomitant]
     Active Substance: PANTOPRAZOLE
  6. DIAZEPAM [Concomitant]
     Active Substance: DIAZEPAM
  7. OXYCODONE [Concomitant]
     Active Substance: OXYCODONE
  8. ASPIRIN [Concomitant]
     Active Substance: ASPIRIN
  9. IBUPROFEN [Concomitant]
     Active Substance: IBUPROFEN
  10. OMEPRAZOLE [Concomitant]
     Active Substance: OMEPRAZOLE
  11. OCTREOTIDE [Concomitant]
     Active Substance: OCTREOTIDE
  12. NAPROXEN [Concomitant]
     Active Substance: NAPROXEN

REACTIONS (19)
  - Hepatocellular carcinoma [Fatal]
  - Hepatic cirrhosis [Not Recovered/Not Resolved]
  - Oesophageal varices haemorrhage [Unknown]
  - Portal vein thrombosis [Unknown]
  - Hepatic failure [Unknown]
  - Ascites [Unknown]
  - Hepatic mass [Unknown]
  - Varices oesophageal [Unknown]
  - Haematemesis [Recovered/Resolved]
  - Nausea [Recovered/Resolved]
  - Anaemia [Not Recovered/Not Resolved]
  - Leukopenia [Not Recovered/Not Resolved]
  - Constipation [Not Recovered/Not Resolved]
  - Thrombocytopenia [Not Recovered/Not Resolved]
  - Lactic acidosis [Recovered/Resolved]
  - Oedema peripheral [Unknown]
  - Surgery [Recovered/Resolved]
  - Osteopenia [Unknown]
  - Cancer pain [Unknown]

NARRATIVE: CASE EVENT DATE: 20180928
